FAERS Safety Report 20383461 (Version 1)
Quarter: 2022Q1

REPORT INFORMATION
  Report Type: Report from Study
  Country: US (occurrence: US)
  Receive Date: 20220127
  Receipt Date: 20220127
  Transmission Date: 20220423
  Serious: Yes (Other)
  Sender: FDA-Public Use
  Company Number: US-BAYER-2022A011100

PATIENT
  Age: 63 Year
  Sex: Male

DRUGS (1)
  1. STIVARGA [Suspect]
     Active Substance: REGORAFENIB
     Indication: Colorectal cancer metastatic
     Dosage: 80 MG, QD FOR 21 DAYS WITHHOLD FOR 7 DAYS THEN REPEAT CYCLE TAKE AFTER A LOW FAT MEAL
     Dates: start: 20211116

REACTIONS (3)
  - Bedridden [Not Recovered/Not Resolved]
  - Adverse drug reaction [None]
  - Off label use [None]

NARRATIVE: CASE EVENT DATE: 20211116
